FAERS Safety Report 10784645 (Version 1)
Quarter: 2015Q1

REPORT INFORMATION
  Report Type: Spontaneous
  Country: US (occurrence: US)
  Receive Date: 20150211
  Receipt Date: 20150211
  Transmission Date: 20150721
  Serious: Yes (Death)
  Sender: FDA-Public Use
  Company Number: US-ROCHE-1536172

PATIENT
  Age: 55 Year
  Sex: Female
  Weight: 56.75 kg

DRUGS (1)
  1. AVASTIN [Suspect]
     Active Substance: BEVACIZUMAB
     Indication: LUNG NEOPLASM MALIGNANT
     Route: 042
     Dates: start: 20141112, end: 20150120

REACTIONS (3)
  - Metastases to central nervous system [Fatal]
  - Metastases to liver [Fatal]
  - Death [Fatal]

NARRATIVE: CASE EVENT DATE: 20150120
